FAERS Safety Report 7762510-9 (Version None)
Quarter: 2011Q3

REPORT INFORMATION
  Report Type: 
  Country: None (occurrence: None)
  Receive Date: 20110920
  Receipt Date: 20110811
  Transmission Date: 20111222
  Serious: No
  Sender: FDA-Public Use
  Company Number: US-MYLANLABS-2011S1017038

PATIENT
  Age: 57 Year
  Sex: Female

DRUGS (4)
  1. TRAZODONE HCL [Suspect]
     Indication: INSOMNIA
     Dosage: 1-3 TABLETS
     Route: 048
     Dates: start: 20110801
  2. SIMVASTATIN [Concomitant]
     Indication: BLOOD CHOLESTEROL INCREASED
  3. DOXYCYCLINE [Concomitant]
     Indication: ROSACEA
  4. TRAZODONE HCL [Suspect]
     Dosage: 1-3 TABLETS
     Route: 048
     Dates: start: 20110801

REACTIONS (2)
  - DRUG INEFFECTIVE FOR UNAPPROVED INDICATION [None]
  - INSOMNIA [None]
